FAERS Safety Report 18764632 (Version 4)
Quarter: 2023Q2

REPORT INFORMATION
  Report Type: Report from Study
  Country: AR (occurrence: AR)
  Receive Date: 20210120
  Receipt Date: 20230609
  Transmission Date: 20230722
  Serious: Yes (Hospitalization)
  Sender: FDA-Public Use
  Company Number: AR-TAKEDA-2020TUS061106

PATIENT
  Age: 14 Month
  Sex: Male

DRUGS (19)
  1. IDURSULFASE [Suspect]
     Active Substance: IDURSULFASE
     Indication: Mucopolysaccharidosis II
     Dosage: 0.5 MILLIGRAM/KILOGRAM, 1/WEEK
     Route: 042
     Dates: start: 20150113
  2. DIPHENHYDRAMINE [Concomitant]
     Active Substance: DIPHENHYDRAMINE
     Indication: Premedication
     Dosage: UNK
     Route: 048
     Dates: start: 20150127
  3. DIPHENHYDRAMINE [Concomitant]
     Active Substance: DIPHENHYDRAMINE
     Indication: Type IV hypersensitivity reaction
     Dosage: UNK
     Route: 048
     Dates: start: 20150802, end: 20150802
  4. DIPHENHYDRAMINE [Concomitant]
     Active Substance: DIPHENHYDRAMINE
     Indication: Erythema
     Dosage: UNK
     Route: 065
     Dates: start: 20190122, end: 20190122
  5. DIPHENHYDRAMINE [Concomitant]
     Active Substance: DIPHENHYDRAMINE
     Indication: Hypersensitivity
     Dosage: UNK
     Route: 048
     Dates: start: 20150726, end: 20150726
  6. DIPHENHYDRAMINE [Concomitant]
     Active Substance: DIPHENHYDRAMINE
     Dosage: UNK
     Route: 065
     Dates: start: 20160203, end: 20160203
  7. DIPHENHYDRAMINE [Concomitant]
     Active Substance: DIPHENHYDRAMINE
     Dosage: UNK
     Route: 048
     Dates: start: 20150113
  8. ALBUTEROL [Concomitant]
     Active Substance: ALBUTEROL
     Indication: Bronchospasm
     Dosage: UNK
     Route: 065
     Dates: start: 20180530, end: 20180601
  9. AMOXICILLIN\CLAVULANIC ACID [Concomitant]
     Active Substance: AMOXICILLIN\CLAVULANIC ACID
     Indication: Otitis media chronic
     Dosage: UNK
     Route: 065
     Dates: start: 20180601, end: 20180607
  10. AMOXICILLIN\CLAVULANIC ACID [Concomitant]
     Active Substance: AMOXICILLIN\CLAVULANIC ACID
     Indication: Otitis media acute
     Dosage: UNK
     Route: 048
     Dates: start: 201703, end: 201703
  11. AMOXICILLIN\CLAVULANIC ACID [Concomitant]
     Active Substance: AMOXICILLIN\CLAVULANIC ACID
     Dosage: UNK
     Route: 048
     Dates: start: 20190712, end: 20190722
  12. ACETAMINOPHEN [Concomitant]
     Active Substance: ACETAMINOPHEN
     Indication: Product used for unknown indication
     Dosage: UNK
     Route: 065
     Dates: start: 20190122
  13. ACETAMINOPHEN [Concomitant]
     Active Substance: ACETAMINOPHEN
     Indication: Premedication
     Dosage: UNK
     Route: 048
     Dates: start: 20150127
  14. HYDROCORTISONE [Concomitant]
     Active Substance: HYDROCORTISONE
     Indication: Premedication
     Dosage: UNK
     Route: 042
     Dates: start: 20150519
  15. MELATONIN [Concomitant]
     Active Substance: MELATONIN
     Indication: Insomnia
     Dosage: UNK
     Route: 048
     Dates: start: 20180710
  16. AMOXICILLIN [Concomitant]
     Active Substance: AMOXICILLIN
     Indication: Otitis media acute
     Dosage: UNK
     Route: 048
     Dates: start: 20170901
  17. BETAMETHASONE [Concomitant]
     Active Substance: BETAMETHASONE
     Indication: Bronchospasm
     Dosage: UNK
     Route: 065
     Dates: start: 20180530, end: 20180601
  18. SULFAMETHOXAZOLE\TRIMETHOPRIM [Concomitant]
     Active Substance: SULFAMETHOXAZOLE\TRIMETHOPRIM
     Indication: Otitis media acute
     Dosage: UNK
     Route: 048
     Dates: start: 201703, end: 201703
  19. DIPYRONE [Concomitant]
     Active Substance: DIPYRONE
     Indication: Product used for unknown indication
     Dosage: UNK
     Route: 048
     Dates: start: 20171106

REACTIONS (7)
  - Adenoidectomy [Unknown]
  - Cryptorchism [Recovered/Resolved]
  - Catheter placement [Recovered/Resolved]
  - Infusion related hypersensitivity reaction [Recovered/Resolved]
  - Wound complication [Recovered/Resolved]
  - Rash papular [Unknown]
  - Infusion related hypersensitivity reaction [Recovered/Resolved]

NARRATIVE: CASE EVENT DATE: 20150726
